FAERS Safety Report 7106597-5 (Version None)
Quarter: 2010Q4

REPORT INFORMATION
  Report Type: 
  Country: None (occurrence: None)
  Receive Date: 20101116
  Receipt Date: 20101111
  Transmission Date: 20110411
  Serious: No
  Sender: FDA-Public Use
  Company Number: US-ABBOTT-10P-163-0685033-00

PATIENT
  Sex: Female
  Weight: 83.99 kg

DRUGS (8)
  1. SIMCOR [Suspect]
     Indication: BLOOD TRIGLYCERIDES INCREASED
     Dosage: 500
     Dates: start: 20100801, end: 20101104
  2. SIMCOR [Suspect]
     Indication: BLOOD CHOLESTEROL INCREASED
     Dosage: 1000 MG
     Dates: start: 20101104
  3. LEVOTHYROXINE [Concomitant]
     Indication: HYPOTHYROIDISM
  4. LISINOPRIL [Concomitant]
     Indication: HYPERTENSION
  5. NEURONTIN [Concomitant]
     Indication: PAIN
     Dates: start: 20070101
  6. FENTANYL [Concomitant]
     Indication: PAIN
     Dosage: PATCH
     Route: 062
  7. TRAMADOL HCL [Concomitant]
     Indication: PAIN
  8. PERCOCET [Concomitant]
     Indication: PAIN

REACTIONS (8)
  - CHEST DISCOMFORT [None]
  - DYSPNOEA [None]
  - FLUSHING [None]
  - GENERALISED ERYTHEMA [None]
  - HOT FLUSH [None]
  - OEDEMA MOUTH [None]
  - PHARYNGEAL HYPOAESTHESIA [None]
  - SKIN BURNING SENSATION [None]
